FAERS Safety Report 5025430-9 (Version None)
Quarter: 2006Q2

REPORT INFORMATION
  Report Type: 
  Country: None (occurrence: None)
  Receive Date: 20060608
  Receipt Date: 20060601
  Transmission Date: 20061013
  Serious: Yes (Other)
  Sender: FDA-Public Use
  Company Number: 2006070727

PATIENT
  Age: 41 Year
  Sex: Male
  Weight: 63.5036 kg

DRUGS (2)
  1. BENGAY PAIN RELIEVING PATCH (MENTHOL) [Suspect]
     Indication: SHOULDER PAIN
     Dosage: ONE PATCH TWICE, TOPICAL
     Route: 061
     Dates: start: 20060520, end: 20060528
  2. FLUTICASONE PROPIONATE [Concomitant]

REACTIONS (8)
  - AURICULAR SWELLING [None]
  - ERYTHEMA [None]
  - EYE SWELLING [None]
  - OEDEMA MOUTH [None]
  - OEDEMA PERIPHERAL [None]
  - PRURITUS [None]
  - SWELLING FACE [None]
  - THROAT TIGHTNESS [None]
